FAERS Safety Report 8004227-1 (Version None)
Quarter: 2011Q4

REPORT INFORMATION
  Report Type: 
  Country: None (occurrence: None)
  Receive Date: 20111223
  Receipt Date: 20111215
  Transmission Date: 20120403
  Serious: No
  Sender: FDA-Public Use
  Company Number: US-BIOGENIDEC-2011BI043357

PATIENT
  Age: 29 Year
  Sex: Male

DRUGS (1)
  1. TYSABRI [Suspect]
     Indication: MULTIPLE SCLEROSIS
     Route: 042
     Dates: start: 20111110

REACTIONS (18)
  - OCULAR HYPERAEMIA [None]
  - DRY EYE [None]
  - DIPLOPIA [None]
  - BLADDER DISORDER [None]
  - MEMORY IMPAIRMENT [None]
  - MOOD ALTERED [None]
  - BALANCE DISORDER [None]
  - SYNCOPE [None]
  - PHOTOPHOBIA [None]
  - EYE PAIN [None]
  - PAIN [None]
  - MOBILITY DECREASED [None]
  - FEELING ABNORMAL [None]
  - DEPRESSION [None]
  - INSOMNIA [None]
  - ANXIETY [None]
  - MOOD SWINGS [None]
  - ABNORMAL DREAMS [None]
